FAERS Safety Report 7918000-3 (Version None)
Quarter: 2011Q4

REPORT INFORMATION
  Report Type: 
  Country: None (occurrence: None)
  Receive Date: 20111116
  Receipt Date: 20111116
  Transmission Date: 20120403
  Serious: No
  Sender: FDA-Public Use
  Company Number: US-JNJFOC-20110909514

PATIENT
  Sex: Female

DRUGS (4)
  1. FENTANYL CITRATE [Suspect]
     Indication: BACK PAIN
     Route: 062
     Dates: end: 20110901
  2. FENTANYL-100 [Suspect]
     Indication: BACK PAIN
     Route: 065
  3. UNSPECIFIED BIRTH CONTROL PILLS [Concomitant]
     Route: 048
  4. FENTANYL-100 [Suspect]
     Route: 065
     Dates: start: 20110901

REACTIONS (1)
  - WRONG TECHNIQUE IN DRUG USAGE PROCESS [None]
